FAERS Safety Report 8285316-3 (Version None)
Quarter: 2012Q2

REPORT INFORMATION
  Report Type: 
  Country: None (occurrence: None)
  Receive Date: 20120413
  Receipt Date: 20111010
  Transmission Date: 20120825
  Serious: No
  Sender: FDA-Public Use
  Company Number: US-ASTRAZENECA-2011SE61302

PATIENT
  Age: 52 Year
  Sex: Female

DRUGS (2)
  1. NEXIUM [Suspect]
     Route: 048
  2. NEXIUM [Suspect]
     Route: 048

REACTIONS (7)
  - APHONIA [None]
  - DYSPEPSIA [None]
  - VOMITING [None]
  - DRUG EFFECT DECREASED [None]
  - INAPPROPRIATE SCHEDULE OF DRUG ADMINISTRATION [None]
  - THROAT IRRITATION [None]
  - GASTROOESOPHAGEAL REFLUX DISEASE [None]
